FAERS Safety Report 4946702-X (Version None)
Quarter: 2006Q1

REPORT INFORMATION
  Report Type: 
  Country: None (occurrence: None)
  Receive Date: 20060317
  Receipt Date: 20050908
  Transmission Date: 20060701
  Serious: Yes (Hospitalization, Disabling)
  Sender: FDA-Public Use
  Company Number: US-MERCK-0509USA01192

PATIENT
  Age: 67 Year
  Sex: Female
  Weight: 63 kg

DRUGS (5)
  1. VIOXX [Suspect]
     Indication: ARTHRALGIA
     Route: 048
  2. VIOXX [Suspect]
     Indication: OSTEOARTHRITIS
     Route: 048
  3. ELAVIL [Concomitant]
     Route: 065
  4. ESTROGENS (UNSPECIFIED) [Concomitant]
     Route: 065
  5. TYLENOL (CAPLET) [Concomitant]
     Route: 065

REACTIONS (22)
  - AMNESIA [None]
  - ANXIETY [None]
  - ARTHRITIS [None]
  - BACK PAIN [None]
  - CEREBRAL ARTERIOSCLEROSIS [None]
  - CEREBRAL ARTERY STENOSIS [None]
  - CEREBRAL INFARCTION [None]
  - CEREBROVASCULAR ACCIDENT [None]
  - DEPRESSION [None]
  - DYSGEUSIA [None]
  - FLANK PAIN [None]
  - HEADACHE [None]
  - HYPOCHONDRIASIS [None]
  - INTERVERTEBRAL DISC DEGENERATION [None]
  - PNEUMONIA [None]
  - POLYTRAUMATISM [None]
  - SJOGREN'S SYNDROME [None]
  - SOMATISATION DISORDER [None]
  - SPINAL OSTEOARTHRITIS [None]
  - URINARY TRACT INFECTION [None]
  - VISUAL FIELD DEFECT [None]
  - WEIGHT DECREASED [None]
